FAERS Safety Report 9563508 (Version 1)
Quarter: 2013Q3

REPORT INFORMATION
  Report Type: Spontaneous
  Country: US (occurrence: None)
  Receive Date: 20130926
  Receipt Date: 20130926
  Transmission Date: 20140515
  Serious: Yes (Hospitalization)
  Sender: FDA-Public Use
  Company Number: None

PATIENT
  Age: 62 Year
  Sex: Male

DRUGS (7)
  1. SPIRONOLACTONE [Suspect]
     Dosage: UNKNOWN
     Route: 048
  2. ALLOPURINOL [Concomitant]
  3. ASPIRIN [Concomitant]
  4. ATENOLOL [Concomitant]
  5. GLIPIZIDE [Concomitant]
  6. PRAVASTATIN [Concomitant]
  7. ALBUTEROL [Concomitant]

REACTIONS (2)
  - Blood potassium increased [None]
  - Atrial flutter [None]
